FAERS Safety Report 12074611 (Version 2)
Quarter: 2016Q2

REPORT INFORMATION
  Report Type: Spontaneous
  Country: US (occurrence: US)
  Receive Date: 20160212
  Receipt Date: 20160405
  Transmission Date: 20160815
  Serious: Yes (Hospitalization, Other)
  Sender: FDA-Public Use
  Company Number: US-LUNDBECK-DKLU2009752

PATIENT
  Age: 1 Year
  Sex: Female

DRUGS (1)
  1. SABRIL [Suspect]
     Active Substance: VIGABATRIN
     Indication: EPILEPSY
     Route: 048
     Dates: start: 20150122

REACTIONS (4)
  - Infantile spasms [Recovering/Resolving]
  - Bronchiolitis [Unknown]
  - Seizure [Unknown]
  - Viral infection [Unknown]

NARRATIVE: CASE EVENT DATE: 20160130
